FAERS Safety Report 5324662-X (Version None)
Quarter: 2007Q2

REPORT INFORMATION
  Report Type: 
  Country: None (occurrence: None)
  Receive Date: 20070509
  Receipt Date: 20070423
  Transmission Date: 20071010
  Serious: Yes (Other)
  Sender: FDA-Public Use
  Company Number: DSA_29833_2007

PATIENT
  Age: 76 Year
  Sex: Female

DRUGS (3)
  1. ENALAPRIL MALEATE (ENALAPRIL MALEATE) 20 MG [Suspect]
     Indication: HYPERTENSION
     Dosage: 20 MG QD ORAL
     Route: 048
     Dates: start: 20061201, end: 20061201
  2. CARDURA /00639302/ [Concomitant]
  3. BECLOMETHASONE DIPROPIONATE [Concomitant]

REACTIONS (3)
  - ANOREXIA [None]
  - FLATULENCE [None]
  - NAUSEA [None]
